FAERS Safety Report 10029567 (Version 2)
Quarter: 2014Q2

REPORT INFORMATION
  Report Type: Spontaneous
  Country: US (occurrence: US)
  Receive Date: 20140322
  Receipt Date: 20140409
  Transmission Date: 20141212
  Serious: No
  Sender: FDA-Public Use
  Company Number: US-009507513-1403USA007752

PATIENT
  Age: 77 Year
  Sex: Female

DRUGS (5)
  1. MIRALAX [Suspect]
     Indication: CONSTIPATION
     Dosage: 17 G, ONCE
     Route: 048
     Dates: start: 20140303
  2. AZOR (ALPRAZOLAM) [Concomitant]
     Indication: CARDIAC DISORDER
     Dosage: UNK, UNKNOWN
  3. ATENOLOL [Concomitant]
     Indication: CARDIAC DISORDER
     Dosage: UNK, UNKNOWN
  4. ELIQUIS [Concomitant]
     Indication: CARDIAC DISORDER
     Dosage: UNK, UNKNOWN
  5. L-THYROXIN [Concomitant]
     Indication: HYPOTHYROIDISM
     Dosage: UNK, UNKNOWN

REACTIONS (4)
  - Abdominal distension [Not Recovered/Not Resolved]
  - Feeling abnormal [Unknown]
  - Feeling cold [Unknown]
  - Unevaluable event [Not Recovered/Not Resolved]
